FAERS Safety Report 7877512-1 (Version None)
Quarter: 2011Q4

REPORT INFORMATION
  Report Type: 
  Country: None (occurrence: None)
  Receive Date: 20111031
  Receipt Date: 20111025
  Transmission Date: 20120403
  Serious: Yes (Other)
  Sender: FDA-Public Use
  Company Number: DE-ABBOTT-11P-062-0868379-00

PATIENT
  Sex: Female
  Weight: 70 kg

DRUGS (2)
  1. METHOTREXATE [Concomitant]
     Indication: PROSTATIC SPECIFIC ANTIGEN
     Dates: start: 20090801
  2. HUMIRA [Suspect]
     Indication: PROSTATIC SPECIFIC ANTIGEN
     Route: 058
     Dates: start: 20110401

REACTIONS (1)
  - ACQUIRED CLAW TOE [None]
